FAERS Safety Report 12471129 (Version 2)
Quarter: 2016Q2

REPORT INFORMATION
  Report Type: Report from Study
  Country: PE (occurrence: PE)
  Receive Date: 20160616
  Receipt Date: 20160617
  Transmission Date: 20160815
  Serious: Yes (Other)
  Sender: FDA-Public Use
  Company Number: PE-009507513-1606PER006411

PATIENT
  Age: 16 Year
  Sex: Male

DRUGS (3)
  1. NASONEX [Suspect]
     Active Substance: MOMETASONE FUROATE
     Indication: HYPERSENSITIVITY
     Dosage: 2 SPRAYS IN EACH NOSTRIL AT MORNING AND 2 SPRAYS IN EACH NOSTRIL AT NIGHT/ 8 SPRAYS PER DAY, FOR 1
     Route: 045
     Dates: start: 2016
  2. NASONEX [Suspect]
     Active Substance: MOMETASONE FUROATE
     Indication: NASAL CONGESTION
     Dosage: UNK
     Route: 045
     Dates: start: 2008
  3. NASONEX [Suspect]
     Active Substance: MOMETASONE FUROATE
     Indication: ACUTE SINUSITIS

REACTIONS (4)
  - Prescribed overdose [Unknown]
  - Sinus operation [Unknown]
  - Product use issue [Unknown]
  - Inappropriate schedule of drug administration [Unknown]

NARRATIVE: CASE EVENT DATE: 2008
